FAERS Safety Report 5174004-8 (Version None)
Quarter: 2006Q4

REPORT INFORMATION
  Report Type: 
  Country: None (occurrence: None)
  Receive Date: 20061214
  Receipt Date: 20041222
  Transmission Date: 20070319
  Serious: Yes (Hospitalization)
  Sender: FDA-Public Use
  Company Number: FR-MERCK-0612USA01816

PATIENT
  Age: 41 Year
  Sex: Female

DRUGS (2)
  1. MODURETIC 5-50 [Suspect]
     Route: 048
     Dates: start: 20040401, end: 20041031
  2. BENZALKONIUM CHLORIDE [Suspect]
     Route: 067
     Dates: end: 20041031

REACTIONS (4)
  - ASTHENIA [None]
  - FEELING DRUNK [None]
  - HYPOKINESIA [None]
  - PARALYTIC GAIT [None]
